FAERS Safety Report 4936883-6 (Version None)
Quarter: 2006Q1

REPORT INFORMATION
  Report Type: 
  Country: None (occurrence: None)
  Receive Date: 20060307
  Receipt Date: 20060206
  Transmission Date: 20060701
  Serious: Yes (Death)
  Sender: FDA-Public Use
  Company Number: JP-MERCK-0602USA02198

PATIENT
  Age: 81 Year
  Sex: Male

DRUGS (12)
  1. PRIMAXIN [Suspect]
     Route: 042
     Dates: start: 20060128, end: 20060129
  2. FENTANYL [Concomitant]
     Indication: PAIN
     Route: 061
     Dates: start: 20050622, end: 20060208
  3. PIPERACILLIN SODIUM [Concomitant]
     Indication: INFECTION
     Route: 042
     Dates: start: 20050705, end: 20050708
  4. FLUMARIN [Concomitant]
     Route: 042
     Dates: start: 20050719, end: 20050720
  5. RANDA [Concomitant]
     Indication: CHEMOTHERAPY
     Route: 042
     Dates: start: 20050823, end: 20050823
  6. FLUOROURACIL [Concomitant]
     Indication: CHEMOTHERAPY
     Route: 042
     Dates: start: 20050823, end: 20050823
  7. MICAFUNGIN SODIUM [Concomitant]
     Indication: FUNGAEMIA
     Route: 042
     Dates: start: 20051010, end: 20051023
  8. CLINDAMYCIN PHOSPHATE [Concomitant]
     Indication: SEPSIS
     Route: 042
     Dates: start: 20051024, end: 20051129
  9. VANCOMYCIN HYDROCHLORIDE [Concomitant]
     Indication: STAPHYLOCOCCAL INFECTION
     Route: 042
     Dates: start: 20051028, end: 20051127
  10. UNASYN (AMPICILLIN SODIUM (+) SULBACTAM SODIUM) [Concomitant]
     Indication: PNEUMONIA
     Route: 042
     Dates: start: 20051019, end: 20051106
  11. CEFAZOLIN SODIUM                   09 [Concomitant]
     Indication: PNEUMONIA
     Route: 042
     Dates: start: 20051216, end: 20051221
  12. CEFMETAZON [Concomitant]
     Indication: PNEUMONIA
     Route: 042
     Dates: start: 20051226, end: 20060101

REACTIONS (10)
  - CHOLESTASIS [None]
  - FUNGAL INFECTION [None]
  - HEPATIC ENCEPHALOPATHY [None]
  - HEPATIC FAILURE [None]
  - HEPATIC FUNCTION ABNORMAL [None]
  - OESOPHAGEAL CARCINOMA [None]
  - PNEUMONIA [None]
  - RASH [None]
  - RENAL FAILURE [None]
  - SEPSIS [None]
